FAERS Safety Report 4396995-5 (Version None)
Quarter: 2004Q3

REPORT INFORMATION
  Report Type: 
  Country: None (occurrence: None)
  Receive Date: 20040714
  Receipt Date: 20040707
  Transmission Date: 20050211
  Serious: Yes (Hospitalization)
  Sender: FDA-Public Use
  Company Number: CH-BRISTOL-MYERS SQUIBB COMPANY-12633830

PATIENT
  Age: 54 Year
  Sex: Male

DRUGS (8)
  1. STOCRIN TABS 600 MG [Suspect]
     Indication: HIV INFECTION
     Dosage: ONCE DAILY
     Route: 048
     Dates: start: 20010101, end: 20040601
  2. PLAVIX [Interacting]
     Indication: CORONARY ARTERIAL STENT INSERTION
     Dosage: ONCE DAILY
     Route: 048
     Dates: start: 20031201
  3. FRAXIPARINE [Concomitant]
     Indication: THROMBOSIS PROPHYLAXIS
     Dosage: ONCE DAILY
     Route: 058
  4. ZESTRIL [Concomitant]
     Indication: HYPERTENSION
     Dosage: ONCE DAILY
     Route: 048
  5. DILATREND [Concomitant]
     Indication: HYPERTENSION
     Dosage: ONCE DAILY
     Route: 048
  6. MARCOUMAR [Concomitant]
     Indication: THROMBOSIS PROPHYLAXIS
     Dosage: ONCE DAILY
     Route: 048
  7. DOXIUM [Concomitant]
     Indication: VENOUS INSUFFICIENCY
     Dosage: ONCE DIALY
     Route: 048
  8. MOTILIUM [Concomitant]
     Indication: NAUSEA
     Dosage: ONCE DAILY
     Route: 048

REACTIONS (2)
  - DRUG INTERACTION [None]
  - STENT OCCLUSION [None]
